FAERS Safety Report 9681364 (Version 2)
Quarter: 2014Q1

REPORT INFORMATION
  Report Type: Spontaneous
  Country: US (occurrence: US)
  Receive Date: 20131111
  Receipt Date: 20140121
  Transmission Date: 20141002
  Serious: Yes (Hospitalization)
  Sender: FDA-Public Use
  Company Number: US-PFIZER INC-2013317134

PATIENT
  Age: 33 Year
  Sex: Male
  Weight: 195 kg

DRUGS (2)
  1. ZYVOX [Suspect]
     Indication: CELLULITIS
     Dosage: 600 MG, 2X/DAY
     Route: 042
     Dates: start: 20131003
  2. ZYVOX [Suspect]
     Indication: THROMBOSIS

REACTIONS (1)
  - Drug ineffective [Recovering/Resolving]
